FAERS Safety Report 5716414 (Version 3)
Quarter: 2020Q1

REPORT INFORMATION
  Report Type: Spontaneous
  Country: DE (occurrence: DE)
  Receive Date: 20050118
  Receipt Date: 20200229
  Transmission Date: 20200409
  Serious: Yes (Hospitalization)
  Sender: FDA-Public Use
  Company Number: DE-ROCHE-391488

PATIENT
  Age: 43 Year
  Sex: Male
  Weight: 76 kg

DRUGS (2)
  1. PEGASYS [Suspect]
     Active Substance: PEGINTERFERON ALFA-2A
     Indication: HEPATITIS C
     Route: 058
     Dates: start: 20040316, end: 20041220
  2. COPEGUS [Suspect]
     Active Substance: RIBAVIRIN
     Indication: HEPATITIS C
     Route: 048
     Dates: start: 20040316, end: 20041220

REACTIONS (1)
  - Cerebral venous sinus thrombosis [Recovering/Resolving]
